FAERS Safety Report 14833497 (Version 1)
Quarter: 2018Q2

REPORT INFORMATION
  Report Type: Spontaneous
  Country: US (occurrence: US)
  Receive Date: 20180501
  Receipt Date: 20180501
  Transmission Date: 20180711
  Serious: Yes (Death, Life-Threatening, Other)
  Sender: FDA-Public Use
  Company Number: US-AMNEAL PHARMACEUTICALS-2018AMN00232

PATIENT
  Age: 55 Year
  Sex: Male

DRUGS (3)
  1. ETOMIDATE. [Concomitant]
     Active Substance: ETOMIDATE
     Dosage: UNK
     Route: 065
  2. SUCCINYLCHLORIDE [Concomitant]
     Dosage: UNK
     Route: 065
  3. LIDOCAINE. [Suspect]
     Active Substance: LIDOCAINE
     Indication: ENDOTRACHEAL INTUBATION
     Dosage: 4 %, ONCE
     Route: 061

REACTIONS (2)
  - Hypoxia [Fatal]
  - Methaemoglobinaemia [Fatal]
